FAERS Safety Report 4495972-3 (Version None)
Quarter: 2004Q4

REPORT INFORMATION
  Report Type: 
  Country: None (occurrence: None)
  Receive Date: 20040927
  Receipt Date: 20040517
  Transmission Date: 20050328
  Serious: No
  Sender: FDA-Public Use
  Company Number: USA040567725

PATIENT
  Age: 9 Year
  Sex: Male
  Weight: 30 kg

DRUGS (1)
  1. STRATTERA [Suspect]
     Indication: ATTENTION DEFICIT/HYPERACTIVITY DISORDER
     Dosage: 25 MG DAY
     Dates: start: 20040505

REACTIONS (2)
  - CHOKING [None]
  - RETCHING [None]
